FAERS Safety Report 5732527-4 (Version None)
Quarter: 2008Q2

REPORT INFORMATION
  Report Type: 
  Country: None (occurrence: None)
  Receive Date: 20080506
  Receipt Date: 20080423
  Transmission Date: 20081010
  Serious: Yes (Hospitalization)
  Sender: FDA-Public Use
  Company Number: 107#08#2008-02317

PATIENT
  Age: 37 Year
  Sex: Female

DRUGS (3)
  1. IBUPROFEN [Suspect]
     Dates: start: 20050822, end: 20050901
  2. AMOXICILLIN [Suspect]
     Route: 048
     Dates: start: 20050822, end: 20050826
  3. LEPAL (ETHINYLESTRADIOL, LEVONORGESTREL) [Concomitant]

REACTIONS (2)
  - HEPATITIS CHOLESTATIC [None]
  - STEVENS-JOHNSON SYNDROME [None]
